FAERS Safety Report 9151130 (Version 2)
Quarter: 2013Q2

REPORT INFORMATION
  Report Type: Report from Study
  Country: JP (occurrence: JP)
  Receive Date: 20130308
  Receipt Date: 20130614
  Transmission Date: 20140414
  Serious: Yes (Death, Other)
  Sender: FDA-Public Use
  Company Number: JP-ROCHE-1198620

PATIENT
  Age: 86 Year
  Sex: Male

DRUGS (10)
  1. METHOXY POLYETHYLENE GLYCOL-EPOETIN BETA [Suspect]
     Indication: NEPHROGENIC ANAEMIA
     Route: 058
     Dates: start: 20111020, end: 20111020
  2. METHOXY POLYETHYLENE GLYCOL-EPOETIN BETA [Suspect]
     Indication: NEPHROGENIC ANAEMIA
     Route: 058
     Dates: start: 20111101, end: 20120228
  3. METHOXY POLYETHYLENE GLYCOL-EPOETIN BETA [Suspect]
     Indication: NEPHROGENIC ANAEMIA
     Route: 058
     Dates: start: 20120313, end: 20120410
  4. DIOVAN [Concomitant]
     Indication: NEPHROSCLEROSIS
     Route: 048
     Dates: end: 20120113
  5. CILOSTAZOL [Concomitant]
     Indication: NEPHROSCLEROSIS
     Dosage: DRUG REPORTED AS : CILOSTATE
     Route: 048
     Dates: end: 20120113
  6. SENNARIDE [Concomitant]
     Route: 048
     Dates: end: 20120113
  7. BROTIZOLAM [Concomitant]
     Dosage: DRUG NAME: ZESTROMIN
     Route: 048
     Dates: end: 20121221
  8. HOKUNALIN [Concomitant]
     Route: 062
     Dates: end: 20120402
  9. BIO-THREE [Concomitant]
     Route: 048
     Dates: start: 20111214, end: 20120113
  10. ATENOTE [Concomitant]
     Route: 065
     Dates: start: 20120403, end: 20120409

REACTIONS (3)
  - Sepsis [Fatal]
  - Respiratory failure [Fatal]
  - Urinary tract infection [Unknown]
